FAERS Safety Report 7426725 (Version 7)
Quarter: 2012Q4

REPORT INFORMATION
  Report Type: 
  Country: US (occurrence: US)
  Receive Date: 20100621
  Receipt Date: 20121003
  Transmission Date: 20130627
  Serious: Yes (Death, Other)
  Sender: FDA-Public Use
  Company Number: US-BAYER-201025180NA

PATIENT
  Age: 38 Year
  Sex: Female
  Weight: 97 kg

DRUGS (6)
  1. OCELLA [Suspect]
     Dosage: UNK
     Route: 048
     Dates: start: 2008, end: 200909
  2. OCELLA [Suspect]
     Dosage: UNK
     Route: 048
     Dates: start: 2008, end: 200909
  3. YASMIN [Suspect]
  4. VITAMIN B1 [Concomitant]
  5. VIBRAMYCIN [Concomitant]
  6. PROVERA [Concomitant]
     Dosage: 10 mg, 1 tab (interpreted as tablet)

REACTIONS (4)
  - Pulmonary embolism [Fatal]
  - Cerebrovascular accident [Fatal]
  - Diabetes mellitus inadequate control [Not Recovered/Not Resolved]
  - Mental disorder [None]
